FAERS Safety Report 24629710 (Version 4)
Quarter: 2025Q1

REPORT INFORMATION
  Report Type: Report from Study
  Country: US (occurrence: US)
  Receive Date: 20241118
  Receipt Date: 20250318
  Transmission Date: 20250408
  Serious: Yes (Death, Other)
  Sender: BIOVITRUM
  Company Number: US-BIOVITRUM-2024-US-014775

PATIENT
  Age: 79 Year
  Sex: Male
  Weight: 71.0 kg

DRUGS (5)
  1. DOPTELET [Suspect]
     Active Substance: AVATROMBOPAG MALEATE
     Indication: Immune thrombocytopenia
     Route: 065
     Dates: start: 20220310
  2. DEXAMETHASONE [Suspect]
     Active Substance: DEXAMETHASONE
     Indication: Immune thrombocytopenia
     Route: 065
     Dates: start: 20220303, end: 20220317
  3. PREDNISONE [Suspect]
     Active Substance: PREDNISONE
     Indication: Immune thrombocytopenia
     Route: 065
     Dates: start: 20211210, end: 20211217
  4. PREDNISONE [Suspect]
     Active Substance: PREDNISONE
     Route: 065
     Dates: start: 20220113, end: 20220303
  5. ELTROMBOPAG [Suspect]
     Active Substance: ELTROMBOPAG
     Indication: Immune thrombocytopenia
     Route: 065
     Dates: start: 20220303, end: 20220310

REACTIONS (1)
  - Death [Fatal]
